FAERS Safety Report 26138336 (Version 1)
Quarter: 2025Q4

REPORT INFORMATION
  Report Type: Report from Study
  Country: CA (occurrence: CA)
  Receive Date: 20251210
  Receipt Date: 20251210
  Transmission Date: 20260117
  Serious: Yes (Death, Other)
  Sender: GLAXOSMITHKLINE
  Company Number: CA-GSK-CA2025137060

PATIENT
  Sex: Male

DRUGS (1)
  1. MOMELOTINIB [Suspect]
     Active Substance: MOMELOTINIB
     Indication: Myelofibrosis
     Dosage: 200 MG

REACTIONS (6)
  - Death [Fatal]
  - Cough [Unknown]
  - Secretion discharge [Unknown]
  - Stomatitis [Unknown]
  - Rhinorrhoea [Unknown]
  - Scab [Unknown]
